FAERS Safety Report 26201861 (Version 1)
Quarter: 2025Q4

REPORT INFORMATION
  Report Type: Spontaneous
  Country: GB (occurrence: GB)
  Receive Date: 20251226
  Receipt Date: 20251226
  Transmission Date: 20260118
  Serious: Yes (Other)
  Sender: TEVA
  Company Number: None

PATIENT
  Age: 25 Year
  Sex: Female
  Weight: 57 kg

DRUGS (6)
  1. OSELTAMIVIR [Suspect]
     Active Substance: OSELTAMIVIR
     Indication: Product used for unknown indication
     Route: 065
     Dates: start: 20251215
  2. PENICILLIN V [Concomitant]
     Active Substance: PENICILLIN V
     Indication: Ill-defined disorder
     Dosage: TAKE TWO TABLETS FOUR TIMES A DAY FOR 5
     Dates: start: 20251215
  3. LACTULOSE [Concomitant]
     Active Substance: LACTULOSE
     Indication: Ill-defined disorder
     Dates: start: 20251021, end: 20251031
  4. FERROUS SULFATE [Concomitant]
     Active Substance: FERROUS SULFATE
     Indication: Ill-defined disorder
     Dates: start: 20251021
  5. MENTHOL [Concomitant]
     Active Substance: MENTHOL
     Indication: Ill-defined disorder
     Dates: start: 20251210
  6. CONTOUR [Concomitant]
     Indication: Ill-defined disorder
     Dosage: USE AS DIRECTED,  PLUS
     Dates: start: 20251030

REACTIONS (2)
  - Rash [Recovered/Resolved]
  - Pharyngeal swelling [Recovered/Resolved]
